FAERS Safety Report 10082543 (Version 1)
Quarter: 2014Q2

REPORT INFORMATION
  Report Type: Spontaneous
  Country: US (occurrence: US)
  Receive Date: 20140416
  Receipt Date: 20140416
  Transmission Date: 20141212
  Serious: No
  Sender: FDA-Public Use
  Company Number: US-MALLINCKRODT-T201305227

PATIENT
  Age: 76 Year
  Sex: Female

DRUGS (1)
  1. METHYLIN [Suspect]
     Indication: DEMENTIA ALZHEIMER^S TYPE
     Dosage: 5 MG, SINGLE
     Route: 048

REACTIONS (3)
  - Drug administration error [Unknown]
  - Off label use [Unknown]
  - Therapeutic response changed [Unknown]
